FAERS Safety Report 8574082-X (Version None)
Quarter: 2012Q3

REPORT INFORMATION
  Report Type: 
  Country: None (occurrence: None)
  Receive Date: 20120806
  Receipt Date: 20120730
  Transmission Date: 20120928
  Serious: Yes (Hospitalization)
  Sender: FDA-Public Use
  Company Number: PHHY2012CN066372

PATIENT
  Sex: Male

DRUGS (2)
  1. HALOPERIDOL [Suspect]
     Dosage: 4 MG, TID MATERNAL DOSE
     Route: 064
  2. CLOZAPINE [Suspect]
     Dosage: 50 MG, TID MATERNAL DOSE
     Route: 064

REACTIONS (17)
  - LIP DISCOLOURATION [None]
  - STARING [None]
  - YELLOW SKIN [None]
  - IRRITABILITY [None]
  - GAZE PALSY [None]
  - MUSCLE SPASMS [None]
  - OEDEMA [None]
  - HAEMORRHAGE SUBCUTANEOUS [None]
  - DRUG WITHDRAWAL SYNDROME NEONATAL [None]
  - CONVULSION [None]
  - VOMITING [None]
  - NAIL DISCOLOURATION [None]
  - POOR SUCKING REFLEX [None]
  - MUSCLE TWITCHING [None]
  - FOETAL EXPOSURE DURING PREGNANCY [None]
  - DYSPHAGIA [None]
  - MUSCLE TIGHTNESS [None]
